FAERS Safety Report 7355332-4 (Version None)
Quarter: 2011Q1

REPORT INFORMATION
  Report Type: 
  Country: None (occurrence: None)
  Receive Date: 20110316
  Receipt Date: 20110301
  Transmission Date: 20110831
  Serious: Yes (Death, Hospitalization, Other)
  Sender: FDA-Public Use
  Company Number: BR-MEDIMMUNE-MEDI-0012328

PATIENT
  Sex: Male

DRUGS (1)
  1. SYNAGIS [Suspect]

REACTIONS (2)
  - HEART DISEASE CONGENITAL [None]
  - CARDIAC ARREST [None]
